FAERS Safety Report 19121154 (Version 4)
Quarter: 2021Q2

REPORT INFORMATION
  Report Type: Spontaneous
  Country: US (occurrence: US)
  Receive Date: 20210412
  Receipt Date: 20210520
  Transmission Date: 20210717
  Serious: Yes (Life-Threatening, Other)
  Sender: FDA-Public Use
  Company Number: US-MYLANLABS-2021M1021105

PATIENT
  Age: 28 Year
  Sex: Male
  Weight: 73 kg

DRUGS (11)
  1. AMLODIPINE [Concomitant]
     Active Substance: AMLODIPINE BESYLATE
     Indication: HYPERTENSION
     Dosage: (MOST RECENT DOSE: 07?APR?2021)
  2. EPINEPHRINE. [Suspect]
     Active Substance: EPINEPHRINE
     Indication: ANAPHYLACTIC SHOCK
     Dosage: UNK
     Dates: start: 20210404, end: 20210404
  3. BENADRYL [Suspect]
     Active Substance: DIPHENHYDRAMINE HYDROCHLORIDE
     Indication: ANAPHYLACTIC REACTION
     Dosage: 25 MILLIGRAM, Q6H PRN (MORE BENADRYL)
     Route: 048
     Dates: start: 20210404
  4. EPINEPHRINE INJECTION USP AUTO?INJECTOR [Suspect]
     Active Substance: EPINEPHRINE
     Indication: HYPERSENSITIVITY
  5. BENADRYL [Suspect]
     Active Substance: DIPHENHYDRAMINE HYDROCHLORIDE
     Indication: HYPERSENSITIVITY
     Dosage: UNK
     Dates: start: 20210402
  6. MODAFINIL. [Concomitant]
     Active Substance: MODAFINIL
     Indication: HYPOSOMNIA
  7. EPINEPHRINE INJECTION USP AUTO?INJECTOR [Suspect]
     Active Substance: EPINEPHRINE
     Indication: ANAPHYLACTIC SHOCK
     Dosage: UNK
     Route: 030
     Dates: start: 20210402, end: 20210402
  8. ADDERALL [Concomitant]
     Active Substance: AMPHETAMINE ASPARTATE\AMPHETAMINE SULFATE\DEXTROAMPHETAMINE SACCHARATE\DEXTROAMPHETAMINE SULFATE
     Indication: ATTENTION DEFICIT HYPERACTIVITY DISORDER
     Dosage: 20 MILLIGRAM, QD (MOST RECENT DOSE: 07?APR?2021)
  9. MODAFINIL. [Concomitant]
     Active Substance: MODAFINIL
     Indication: ATTENTION DEFICIT HYPERACTIVITY DISORDER
  10. EPINEPHRINE. [Suspect]
     Active Substance: EPINEPHRINE
     Indication: ANAPHYLACTIC REACTION
     Dosage: UNK
     Dates: start: 20210405, end: 20210405
  11. MODAFINIL. [Concomitant]
     Active Substance: MODAFINIL
     Indication: SLEEP APNOEA SYNDROME
     Dosage: 200 MILLIGRAM, QD (MOST RECENT DOSE: 07?APR?2021)

REACTIONS (8)
  - Paraesthesia oral [Recovering/Resolving]
  - Tremor [Recovered/Resolved]
  - Oral mucosal erythema [Recovering/Resolving]
  - Drug ineffective [Unknown]
  - Injection site haemorrhage [Recovered/Resolved]
  - Injection site pain [Unknown]
  - Somnolence [Unknown]
  - Disorientation [Recovered/Resolved]

NARRATIVE: CASE EVENT DATE: 20210402
